FAERS Safety Report 17263277 (Version 1)
Quarter: 2020Q1

REPORT INFORMATION
  Report Type: Spontaneous
  Country: US (occurrence: US)
  Receive Date: 20200112
  Receipt Date: 20200112
  Transmission Date: 20200409
  Serious: No
  Sender: FDA-Public Use
  Company Number: None

PATIENT
  Age: 42 Year
  Sex: Female
  Weight: 78.75 kg

DRUGS (5)
  1. FISH OIL [Concomitant]
     Active Substance: FISH OIL
  2. HYOSCYAMINE. [Concomitant]
     Active Substance: HYOSCYAMINE
  3. CYCOLBENZAPRINE [Concomitant]
  4. GABAPENTIN 300 MG CAPSULE [Suspect]
     Active Substance: GABAPENTIN
     Indication: PAIN
     Dosage: ?          QUANTITY:2 CAPSULE(S);?
     Route: 048
  5. MULTIVITAMIN [Concomitant]
     Active Substance: VITAMINS

REACTIONS (3)
  - Headache [None]
  - Product dosage form issue [None]
  - Manufacturing issue [None]

NARRATIVE: CASE EVENT DATE: 20191126
